FAERS Safety Report 7936275-1 (Version None)
Quarter: 2011Q4

REPORT INFORMATION
  Report Type: 
  Country: None (occurrence: None)
  Receive Date: 20111121
  Receipt Date: 20111107
  Transmission Date: 20120403
  Serious: Yes (Death, Life-Threatening, Hospitalization, Other)
  Sender: FDA-Public Use
  Company Number: 2011P1010224

PATIENT
  Age: 34 Year
  Sex: Female
  Weight: 56 kg

DRUGS (3)
  1. CEFTRIAXONE [Suspect]
     Indication: PYELONEPHRITIS
     Dosage: 2 GM;QD;IM
     Route: 030
  2. CEFTRIAXONE [Suspect]
     Indication: TRACHEOBRONCHITIS
     Dosage: 2 GM;QD;IM
     Route: 030
  3. VITAMIN SUPPLEMENTATION [Concomitant]

REACTIONS (28)
  - WHEEZING [None]
  - METABOLIC ACIDOSIS [None]
  - LEUKOPENIA [None]
  - SHOCK [None]
  - TRICUSPID VALVE INCOMPETENCE [None]
  - FOETAL GROWTH RESTRICTION [None]
  - PRODUCTIVE COUGH [None]
  - PALLOR [None]
  - LEUKOCYTOSIS [None]
  - COUGH [None]
  - BLOOD PRESSURE DECREASED [None]
  - UTERINE ENLARGEMENT [None]
  - CARDIAC ARREST [None]
  - DYSPNOEA [None]
  - CARDIAC MURMUR [None]
  - PULMONARY CONGESTION [None]
  - AORTIC VALVE INCOMPETENCE [None]
  - TRACHEOBRONCHITIS [None]
  - PYREXIA [None]
  - AGITATION [None]
  - RENAL FAILURE ACUTE [None]
  - OEDEMA PERIPHERAL [None]
  - USE OF ACCESSORY RESPIRATORY MUSCLES [None]
  - ORAL CANDIDIASIS [None]
  - DEPRESSED LEVEL OF CONSCIOUSNESS [None]
  - ODYNOPHAGIA [None]
  - RESPIRATORY DISTRESS [None]
  - OLIGOHYDRAMNIOS [None]
